FAERS Safety Report 15681263 (Version 1)
Quarter: 2018Q4

REPORT INFORMATION
  Report Type: Spontaneous
  Country: US (occurrence: US)
  Receive Date: 20181202
  Receipt Date: 20181202
  Transmission Date: 20190205
  Serious: Yes (Life-Threatening, Hospitalization, Disabling)
  Sender: FDA-Public Use
  Company Number: None

PATIENT
  Age: 31 Year
  Sex: Male
  Weight: 54.43 kg

DRUGS (1)
  1. LORSARTAN 100 MG T [Suspect]
     Active Substance: LOSARTAN
     Dates: start: 20120104, end: 20180303

REACTIONS (1)
  - Renal failure [None]

NARRATIVE: CASE EVENT DATE: 20180601
